FAERS Safety Report 9059442 (Version 2)
Quarter: 2013Q2

REPORT INFORMATION
  Report Type: Spontaneous
  Country: US (occurrence: US)
  Receive Date: 20130212
  Receipt Date: 20130612
  Transmission Date: 20140414
  Serious: No
  Sender: FDA-Public Use
  Company Number: US-009507513-1302USA003697

PATIENT
  Sex: Female
  Weight: 54.42 kg

DRUGS (3)
  1. NUVARING [Suspect]
     Indication: CONTRACEPTION
     Dosage: RING IN FOR 3 WEEKS FOLLOWED BY 1 WEEK RING FREE
     Route: 067
     Dates: start: 2007
  2. NUVARING [Suspect]
     Dosage: RING IN FOR 3 WEEKS FOLLOWED BY 1 WEEK RING FREE
     Route: 067
     Dates: start: 2013
  3. FLONASE [Concomitant]

REACTIONS (6)
  - Performance status decreased [Unknown]
  - Contact lens intolerance [Not Recovered/Not Resolved]
  - Metrorrhagia [Not Recovered/Not Resolved]
  - Constipation [Not Recovered/Not Resolved]
  - Depression [Recovering/Resolving]
  - Nausea [Not Recovered/Not Resolved]
